FAERS Safety Report 9027716 (Version 9)
Quarter: 2013Q4

REPORT INFORMATION
  Report Type: Spontaneous
  Country: US (occurrence: US)
  Receive Date: 20130124
  Receipt Date: 20131108
  Transmission Date: 20140711
  Serious: Yes (Hospitalization, Disabling, Other)
  Sender: FDA-Public Use
  Company Number: US-009507513-1301USA010642

PATIENT
  Sex: Male
  Weight: 113.38 kg

DRUGS (8)
  1. JANUVIA [Suspect]
     Indication: TYPE 2 DIABETES MELLITUS
     Dosage: 100 MG, QD
     Route: 048
     Dates: start: 20091104, end: 201201
  2. VICTOZA [Suspect]
     Indication: TYPE 2 DIABETES MELLITUS
     Dosage: 1.2 MG, QD
     Dates: start: 20120911, end: 20130102
  3. METFORMIN [Concomitant]
     Indication: TYPE 2 DIABETES MELLITUS
     Dosage: 1000 MG, UNK
     Route: 048
  4. GLIPIZIDE [Concomitant]
     Indication: TYPE 2 DIABETES MELLITUS
  5. LISINOPRIL [Concomitant]
     Indication: HYPERTENSION
     Dosage: 5 MG, UNK
     Route: 048
     Dates: start: 2009
  6. GLIPIZIDE XL [Concomitant]
     Indication: TYPE 2 DIABETES MELLITUS
     Dosage: 10 MG, 24 HOUR
     Route: 048
  7. GLUCOPHAGE [Concomitant]
     Indication: TYPE 2 DIABETES MELLITUS
  8. LANTUS [Concomitant]
     Indication: TYPE 2 DIABETES MELLITUS

REACTIONS (27)
  - Ductal adenocarcinoma of pancreas [Not Recovered/Not Resolved]
  - Cholecystectomy [Unknown]
  - Pancreaticoduodenectomy [Unknown]
  - Wound infection [Unknown]
  - Flank pain [Unknown]
  - Pancreatitis acute [Unknown]
  - Pancreatitis [Unknown]
  - Back pain [Unknown]
  - Diverticulum intestinal [Unknown]
  - Dehydration [Unknown]
  - Weight fluctuation [Unknown]
  - Hyperlipidaemia [Unknown]
  - Tonsillectomy [Unknown]
  - Hypertriglyceridaemia [Unknown]
  - Urinary tract infection [Unknown]
  - Gastrooesophageal reflux disease [Unknown]
  - Intervertebral disc disorder [Unknown]
  - Biliary tract disorder [Unknown]
  - Diabetes mellitus inadequate control [Unknown]
  - Bile duct stone [Unknown]
  - Adenomatous polyposis coli [Unknown]
  - Cholecystitis [Unknown]
  - Cyst [Unknown]
  - Renal cyst [Unknown]
  - Gastric ulcer [Unknown]
  - Nephrolithiasis [Unknown]
  - Drug ineffective [Unknown]
